FAERS Safety Report 5752404-2 (Version None)
Quarter: 2008Q2

REPORT INFORMATION
  Report Type: 
  Country: None (occurrence: None)
  Receive Date: 20080529
  Receipt Date: 20080520
  Transmission Date: 20081010
  Serious: Yes (Other)
  Sender: FDA-Public Use
  Company Number: B0361737A

PATIENT
  Age: 51 Year
  Sex: Female

DRUGS (12)
  1. PAROXETINE HCL [Suspect]
     Indication: DEPRESSION
     Route: 065
     Dates: start: 19990723
  2. AMITRIPTYLINE HCL [Concomitant]
     Indication: HEADACHE
     Dates: start: 19731102
  3. DIAZEPAM [Concomitant]
     Dates: start: 19740703
  4. IMIPRAMINE [Concomitant]
  5. TAMOXIFEN CITRATE [Concomitant]
     Indication: BREAST CANCER
     Dates: end: 20010601
  6. VALPROIC ACID [Concomitant]
     Indication: EPILEPSY
  7. EVENING PRIMROSE OIL [Concomitant]
     Indication: MENOPAUSAL SYMPTOMS
  8. SIMVASTATIN [Concomitant]
     Indication: HYPERCHOLESTEROLAEMIA
  9. LANSOPRAZOLE [Concomitant]
     Indication: HIATUS HERNIA
  10. FOSAMAX [Concomitant]
     Indication: OSTEOPOROSIS
  11. ATARAX [Concomitant]
     Indication: PRURITUS
     Dates: end: 20000901
  12. TOLTERODINE TARTRATE [Concomitant]
     Indication: HYPERTONIC BLADDER
     Dosage: 2MG TWICE PER DAY
     Dates: start: 20000426, end: 20030201

REACTIONS (25)
  - ADVERSE DRUG REACTION [None]
  - ASTHENIA [None]
  - CONFUSIONAL STATE [None]
  - DEPRESSION [None]
  - DIZZINESS [None]
  - DRUG DEPENDENCE [None]
  - DRUG WITHDRAWAL SYNDROME [None]
  - DYSARTHRIA [None]
  - DYSPEPSIA [None]
  - EMOTIONAL DISORDER [None]
  - FEELING ABNORMAL [None]
  - FEELING DRUNK [None]
  - GAIT DISTURBANCE [None]
  - HANGOVER [None]
  - HEADACHE [None]
  - HYPOAESTHESIA ORAL [None]
  - LOSS OF CONTROL OF LEGS [None]
  - MALAISE [None]
  - MOOD SWINGS [None]
  - NAUSEA [None]
  - PARAESTHESIA [None]
  - SEXUAL DYSFUNCTION [None]
  - SPEECH DISORDER [None]
  - TEARFULNESS [None]
  - URINARY INCONTINENCE [None]
